FAERS Safety Report 12281729 (Version 2)
Quarter: 2016Q3

REPORT INFORMATION
  Report Type: Spontaneous
  Country: US (occurrence: US)
  Receive Date: 20160419
  Receipt Date: 20160906
  Transmission Date: 20161109
  Serious: Yes (Other)
  Sender: FDA-Public Use
  Company Number: US-TEVA-642170USA

PATIENT
  Age: 34 Year
  Sex: Female

DRUGS (4)
  1. ZECUITY [Suspect]
     Active Substance: SUMATRIPTAN SUCCINATE
     Indication: HEADACHE
     Route: 062
     Dates: start: 20160303, end: 20160303
  2. CITALOPRAM [Concomitant]
     Active Substance: CITALOPRAM HYDROBROMIDE
  3. IBUPROFEN. [Concomitant]
     Active Substance: IBUPROFEN
  4. PRILOSEC [Concomitant]
     Active Substance: OMEPRAZOLE MAGNESIUM

REACTIONS (12)
  - Product physical issue [Unknown]
  - Application site irritation [Recovered/Resolved]
  - Application site paraesthesia [Recovered/Resolved]
  - Wrong technique in product usage process [Unknown]
  - Application site warmth [Recovered/Resolved]
  - Application site dryness [Recovered/Resolved]
  - Application site burn [Recovered/Resolved]
  - Application site swelling [Recovered/Resolved]
  - Product adhesion issue [Unknown]
  - Product leakage [Recovered/Resolved]
  - Application site erythema [Recovered/Resolved]
  - Application site discolouration [Recovered/Resolved]

NARRATIVE: CASE EVENT DATE: 20160303
